FAERS Safety Report 5151947-2 (Version None)
Quarter: 2006Q4

REPORT INFORMATION
  Report Type: 
  Country: None (occurrence: None)
  Receive Date: 20061107
  Receipt Date: 20061023
  Transmission Date: 20070319
  Serious: Yes (Death)
  Sender: FDA-Public Use
  Company Number: B0443255A

PATIENT
  Age: 49 Year

DRUGS (3)
  1. WELLBUTRIN [Suspect]
     Dosage: UNK / UNKNOWN/ UNKNOWN
  2. VALSARTAN [Suspect]
     Dosage: UNK/ UNKNOWN/ UNKNOWN
  3. ZOPICLONE (FORMULATION UNKNOWN) (ZOPICLONE) [Suspect]
     Dosage: UNK/ UNKNOWN/ UNKNOWN

REACTIONS (1)
  - CARDIO-RESPIRATORY ARREST [None]
